FAERS Safety Report 6805064-3 (Version None)
Quarter: 2010Q2

REPORT INFORMATION
  Report Type: 
  Country: None (occurrence: None)
  Receive Date: 20100628
  Receipt Date: 20070830
  Transmission Date: 20101027
  Serious: No
  Sender: FDA-Public Use
  Company Number: US-PFIZER INC-2007072533

PATIENT
  Sex: Male
  Weight: 84 kg

DRUGS (5)
  1. SUTENT [Suspect]
     Indication: RENAL CELL CARCINOMA
     Dates: start: 20070827
  2. OXYCODONE HCL [Concomitant]
  3. PROTONIX [Concomitant]
  4. VITAMINS [Concomitant]
  5. BENTYL [Concomitant]

REACTIONS (1)
  - DIARRHOEA [None]
